FAERS Safety Report 12430093 (Version 1)
Quarter: 2016Q2

REPORT INFORMATION
  Report Type: Spontaneous
  Country: US (occurrence: US)
  Receive Date: 20160602
  Receipt Date: 20160602
  Transmission Date: 20160815
  Serious: Yes (Other)
  Sender: FDA-Public Use
  Company Number: US-BRACCO-013591

PATIENT
  Sex: Female

DRUGS (1)
  1. ISOVUE 300 [Suspect]
     Active Substance: IOPAMIDOL
     Indication: COMPUTERISED TOMOGRAM
     Route: 042
     Dates: start: 20100619, end: 20100619

REACTIONS (3)
  - Basedow^s disease [Not Recovered/Not Resolved]
  - Hypersensitivity [Unknown]
  - Thyrotoxic crisis [Not Recovered/Not Resolved]

NARRATIVE: CASE EVENT DATE: 20100619
